FAERS Safety Report 9115325 (Version 3)
Quarter: 2013Q2

REPORT INFORMATION
  Report Type: Spontaneous
  Country: IT (occurrence: IT)
  Receive Date: 20130225
  Receipt Date: 20130401
  Transmission Date: 20140414
  Serious: Yes (Hospitalization)
  Sender: FDA-Public Use
  Company Number: PHHY2013IT017686

PATIENT
  Age: 92 Year
  Sex: Male

DRUGS (6)
  1. COTAREG [Suspect]
     Indication: HYPERTENSION
     Dosage: 0.5 DF, DAILY (320 MG VALS, 12.5 MG HYDR)
     Route: 048
     Dates: start: 20120101, end: 20121212
  2. LASIX [Suspect]
     Indication: HYPERTENSION
     Dosage: 25 MG, DAILY
     Route: 048
     Dates: start: 20120101, end: 20121212
  3. TAMSULOSIN [Concomitant]
  4. AVODART [Concomitant]
     Dosage: 0.5 MG, UNK
  5. LANOXIN [Concomitant]
     Dosage: 0.125 MG, UNK
  6. CARDIRENE [Concomitant]
     Dosage: 160 MG, UNK

REACTIONS (2)
  - Arrhythmia [Recovering/Resolving]
  - Hyponatraemia [Recovering/Resolving]
